FAERS Safety Report 4970457-6 (Version None)
Quarter: 2006Q2

REPORT INFORMATION
  Report Type: 
  Country: None (occurrence: None)
  Receive Date: 20060406
  Receipt Date: 20060321
  Transmission Date: 20061013
  Serious: Yes (Life-Threatening, Other)
  Sender: FDA-Public Use
  Company Number: CA200511001887

PATIENT
  Age: 12 Year
  Sex: Male
  Weight: 55.3 kg

DRUGS (3)
  1. STRATTERA [Suspect]
     Indication: ATTENTION DEFICIT/HYPERACTIVITY DISORDER
     Dosage: SEE IMAGE
     Route: 048
     Dates: start: 20050830, end: 20050908
  2. STRATTERA [Suspect]
     Indication: ATTENTION DEFICIT/HYPERACTIVITY DISORDER
     Dosage: SEE IMAGE
     Route: 048
     Dates: start: 20050909, end: 20050918
  3. STRATTERA [Suspect]
     Indication: ATTENTION DEFICIT/HYPERACTIVITY DISORDER
     Dosage: SEE IMAGE
     Route: 048
     Dates: start: 20050919

REACTIONS (9)
  - AGGRESSION [None]
  - AGITATION [None]
  - ANGER [None]
  - DISTURBANCE IN ATTENTION [None]
  - EMOTIONAL DISORDER [None]
  - FEELING ABNORMAL [None]
  - IMPULSIVE BEHAVIOUR [None]
  - SELF-INJURIOUS IDEATION [None]
  - SUICIDAL IDEATION [None]
